FAERS Safety Report 15900653 (Version 1)
Quarter: 2019Q1

REPORT INFORMATION
  Report Type: Report from Study
  Country: JP (occurrence: JP)
  Receive Date: 20190201
  Receipt Date: 20190201
  Transmission Date: 20190417
  Serious: Yes (Other)
  Sender: FDA-Public Use
  Company Number: PHHY2014JP178472

PATIENT
  Age: 27 Year
  Sex: Female
  Weight: 50 kg

DRUGS (6)
  1. VOTRIENT [Suspect]
     Active Substance: PAZOPANIB HYDROCHLORIDE
     Dosage: 200 MG, QD
     Route: 048
     Dates: start: 20130904, end: 20130910
  2. VOTRIENT [Suspect]
     Active Substance: PAZOPANIB HYDROCHLORIDE
     Dosage: 800 MG, QD
     Route: 048
     Dates: start: 20130225, end: 20130310
  3. VOTRIENT [Suspect]
     Active Substance: PAZOPANIB HYDROCHLORIDE
     Dosage: 400 MG, QD
     Route: 048
     Dates: start: 20130610, end: 20130623
  4. VOTRIENT [Suspect]
     Active Substance: PAZOPANIB HYDROCHLORIDE
     Dosage: 600 MG, QD
     Route: 048
     Dates: start: 20130311, end: 20130324
  5. VOTRIENT [Suspect]
     Active Substance: PAZOPANIB HYDROCHLORIDE
     Dosage: 400 MG, QD
     Route: 048
     Dates: start: 20130513, end: 20130526
  6. VOTRIENT [Suspect]
     Active Substance: PAZOPANIB HYDROCHLORIDE
     Indication: ALVEOLAR SOFT PART SARCOMA
     Dosage: 800 MG, QD
     Route: 048
     Dates: start: 20130121, end: 20130217

REACTIONS (18)
  - Palmar-plantar erythrodysaesthesia syndrome [Recovered/Resolved]
  - Erythema [Recovered/Resolved]
  - Metrorrhagia [Recovered/Resolved]
  - Aspartate aminotransferase increased [Recovered/Resolved]
  - Skin depigmentation [Recovered/Resolved]
  - Pollakiuria [Recovered/Resolved]
  - Blood pressure increased [Recovered/Resolved]
  - Alanine aminotransferase increased [Recovered/Resolved]
  - Erythema multiforme [Recovered/Resolved]
  - Aspartate aminotransferase increased [Recovered/Resolved]
  - Visual impairment [Recovered/Resolved]
  - Nausea [Recovered/Resolved]
  - Rash [Recovered/Resolved]
  - Headache [Recovered/Resolved]
  - Epistaxis [Recovered/Resolved]
  - Blood thyroid stimulating hormone increased [Recovered/Resolved]
  - Alanine aminotransferase increased [Recovered/Resolved]
  - Urinary tract infection [Recovered/Resolved]

NARRATIVE: CASE EVENT DATE: 20130125
